FAERS Safety Report 12426654 (Version 3)
Quarter: 2016Q3

REPORT INFORMATION
  Report Type: Spontaneous
  Country: US (occurrence: US)
  Receive Date: 20160601
  Receipt Date: 20160818
  Transmission Date: 20161109
  Serious: Yes (Hospitalization)
  Sender: FDA-Public Use
  Company Number: US-VERTEX PHARMACEUTICALS-2016-003248

PATIENT
  Age: 37 Year
  Sex: Female

DRUGS (4)
  1. ORKAMBI [Suspect]
     Active Substance: IVACAFTOR\LUMACAFTOR
     Indication: CYSTIC FIBROSIS
     Dosage: 400-250 MG, BID, WITH FAT CONTAINING FOOD
     Route: 048
     Dates: start: 20160303, end: 20160630
  2. PULMOZYME [Concomitant]
     Active Substance: DORNASE ALFA
  3. BETHKIS [Suspect]
     Active Substance: TOBRAMYCIN
     Indication: CYSTIC FIBROSIS
     Dosage: 300 MG, BID
     Route: 055
     Dates: start: 20160219
  4. TRAMADOL. [Concomitant]
     Active Substance: TRAMADOL

REACTIONS (4)
  - Pain [Unknown]
  - Lung infection [Unknown]
  - Drug ineffective [Unknown]
  - Sports injury [Unknown]

NARRATIVE: CASE EVENT DATE: 201603
